FAERS Safety Report 4853802-1 (Version None)
Quarter: 2005Q4

REPORT INFORMATION
  Report Type: 
  Country: None (occurrence: None)
  Receive Date: 20051212
  Receipt Date: 20051128
  Transmission Date: 20060501
  Serious: Yes (Other)
  Sender: FDA-Public Use
  Company Number: 2005163626

PATIENT
  Age: 78 Year
  Sex: Female

DRUGS (6)
  1. DETROL LA [Suspect]
     Indication: ILL-DEFINED DISORDER
  2. AGGRENOX [Concomitant]
  3. LIPITOR [Concomitant]
  4. SYNTHROID [Concomitant]
  5. CELEXA [Concomitant]
  6. VALIUM [Concomitant]

REACTIONS (2)
  - CEREBROVASCULAR ACCIDENT [None]
  - DYSGRAPHIA [None]
